FAERS Safety Report 7966085-0 (Version None)
Quarter: 2011Q4

REPORT INFORMATION
  Report Type: 
  Country: None (occurrence: None)
  Receive Date: 20111208
  Receipt Date: 20111201
  Transmission Date: 20120403
  Serious: Yes (Hospitalization)
  Sender: FDA-Public Use
  Company Number: US-GILEAD-2011-0046075

PATIENT
  Age: 29 Year
  Sex: Female

DRUGS (17)
  1. LETAIRIS [Suspect]
     Indication: PATENT DUCTUS ARTERIOSUS
  2. PLAVIX [Concomitant]
     Dosage: 75 MG, UNK
     Route: 048
  3. SYNTHROID, LEVOTHROID [Concomitant]
     Dosage: 25 ?G, UNK
     Route: 048
  4. LASIX [Concomitant]
     Dosage: 20 MG, UNK
     Route: 048
  5. REVATIO/ VIAGRA [Concomitant]
     Dosage: 20 MG, TID
     Route: 048
  6. ASPIRIN [Concomitant]
     Dosage: 81 MG, UNK
     Route: 048
  7. CAPOTEN [Concomitant]
     Dosage: 25 MG, UNK
     Route: 048
  8. LASIX [Concomitant]
     Dosage: 40 MG, UNK
     Route: 048
  9. MULTI-VITAMIN [Concomitant]
     Route: 048
  10. K-DUR, KLOR-CON M [Concomitant]
     Dosage: 20 UNK, UNK
     Route: 048
  11. ALDACTONE [Concomitant]
     Dosage: 50 MG, UNK
     Route: 048
  12. PACERONE/ CODARONE [Concomitant]
     Dosage: 200 MG, ONCE
     Route: 048
  13. LETAIRIS [Suspect]
     Indication: PULMONARY HYPERTENSION
     Dosage: 5 MG, UNK
     Route: 048
     Dates: start: 20100723
  14. ACETAMINOPHEN AND HYDROCODONE BITARTRATE [Concomitant]
     Dosage: 5.325 MG, Q4HR
     Route: 048
  15. ATIVAN [Concomitant]
     Dosage: 2 MG, UNK
     Route: 048
  16. SYNTHROID, LEVOTHROID [Concomitant]
     Dosage: 50 ?G, UNK
     Route: 048
  17. PROTONIX [Concomitant]
     Dosage: 40 MG, UNK
     Route: 048

REACTIONS (2)
  - HAEMORRHAGE [None]
  - SYPHILIS [None]
